FAERS Safety Report 20336789 (Version 3)
Quarter: 2022Q1

REPORT INFORMATION
  Report Type: Spontaneous
  Country: CN (occurrence: None)
  Receive Date: 20220114
  Receipt Date: 20220330
  Transmission Date: 20220424
  Serious: Yes (Hospitalization, Other)
  Sender: FDA-Public Use
  Company Number: 2022A013232

PATIENT
  Age: 69 Year
  Sex: Male

DRUGS (2)
  1. OSIMERTINIB [Suspect]
     Active Substance: OSIMERTINIB
     Indication: Non-small cell lung cancer
     Route: 048
     Dates: start: 20190130
  2. BEVACIZUMAB [Suspect]
     Active Substance: BEVACIZUMAB
     Indication: Non-small cell lung cancer
     Dosage: 400 MG/MONTH
     Route: 065
     Dates: start: 20190606, end: 20200305

REACTIONS (4)
  - Cardiac failure [Recovering/Resolving]
  - Central nervous system lesion [Unknown]
  - Malignant neoplasm progression [Unknown]
  - Nausea [Recovered/Resolved]
